FAERS Safety Report 21885024 (Version 1)
Quarter: 2023Q1

REPORT INFORMATION
  Report Type: Spontaneous
  Country: US (occurrence: None)
  Receive Date: 20230118
  Receipt Date: 20230118
  Transmission Date: 20230418
  Serious: Yes (Hospitalization)
  Sender: FDA-Public Use
  Company Number: None

PATIENT
  Age: 71 Year
  Sex: Female
  Weight: 60.78 kg

DRUGS (1)
  1. REMICADE [Suspect]
     Active Substance: INFLIXIMAB
     Indication: Neurosarcoidosis
     Dosage: OTHER FREQUENCY : EVERY SIX WEEKS;?
     Route: 041

REACTIONS (2)
  - Heart rate irregular [None]
  - Infusion related reaction [None]

NARRATIVE: CASE EVENT DATE: 20230118
